FAERS Safety Report 4865656-8 (Version None)
Quarter: 2005Q4

REPORT INFORMATION
  Report Type: 
  Country: None (occurrence: None)
  Receive Date: 20051220
  Receipt Date: 20051207
  Transmission Date: 20060501
  Serious: Yes (Hospitalization, Other)
  Sender: FDA-Public Use
  Company Number: 2005150098

PATIENT
  Age: 71 Year
  Sex: Female

DRUGS (6)
  1. LYRICA [Suspect]
     Indication: POST HERPETIC NEURALGIA
     Dosage: 150 MG (75 MG, 2 IN 1 D)
     Route: 048
     Dates: start: 20050922
  2. NEURONTIN [Suspect]
     Indication: POST HERPETIC NEURALGIA
  3. METHOTREXATE [Suspect]
     Indication: RHEUMATOID ARTHRITIS
     Dosage: 12.5 MG (12.5 MG, 1 IN 1 WK), ORAL
     Route: 048
     Dates: start: 19910309
  4. PREVACID [Concomitant]
  5. FOLIC ACID [Concomitant]
  6. IBUPROFEN [Concomitant]

REACTIONS (6)
  - ASTHENIA [None]
  - DRUG INTERACTION [None]
  - HERPES ZOSTER [None]
  - OSTEOPOROSIS [None]
  - PANCYTOPENIA [None]
  - VOMITING [None]
